FAERS Safety Report 20020013 (Version 1)
Quarter: 2021Q4

REPORT INFORMATION
  Report Type: Spontaneous
  Country: US (occurrence: US)
  Receive Date: 20211101
  Receipt Date: 20211101
  Transmission Date: 20220304
  Serious: No
  Sender: FDA-Public Use
  Company Number: US-UNIQUE PHARMACEUTICAL LABORATORIES, A DIV. OF JBCPL-2020RIS00440

PATIENT
  Age: 85 Year
  Sex: Female
  Weight: 61.224 kg

DRUGS (5)
  1. ATENOLOL [Suspect]
     Active Substance: ATENOLOL
     Indication: Blood pressure abnormal
     Dosage: 200 MG, 1X/DAY AT BEDTIME
     Route: 048
     Dates: start: 202010, end: 202010
  2. ATENOLOL [Suspect]
     Active Substance: ATENOLOL
     Dosage: 200 MG, 1X/DAY AT BEDTIME
     Dates: start: 202010
  3. OMEPRAZOLE [Concomitant]
     Active Substance: OMEPRAZOLE
  4. LISINOPRIL [Concomitant]
     Active Substance: LISINOPRIL
  5. CLONIDINE [Concomitant]
     Active Substance: CLONIDINE

REACTIONS (2)
  - Blood pressure increased [Not Recovered/Not Resolved]
  - Product odour abnormal [Unknown]

NARRATIVE: CASE EVENT DATE: 20201001
